FAERS Safety Report 4867338-5 (Version None)
Quarter: 2005Q4

REPORT INFORMATION
  Report Type: 
  Country: None (occurrence: None)
  Receive Date: 20051228
  Receipt Date: 20051215
  Transmission Date: 20060501
  Serious: Yes (Hospitalization)
  Sender: FDA-Public Use
  Company Number: AU-AVENTIS-200515033EU

PATIENT
  Age: 68 Year
  Sex: Female

DRUGS (7)
  1. NATRILIX [Suspect]
     Indication: ESSENTIAL HYPERTENSION
     Dosage: DOSE: UNK
     Route: 048
     Dates: end: 20040328
  2. ZOLOFT [Concomitant]
  3. LIPITOR [Concomitant]
  4. SOMAC [Concomitant]
  5. AUGMENTIN '125' [Concomitant]
  6. TEMAZEPAM [Concomitant]
  7. FLIXOTIDE ^GLAXO^ [Concomitant]

REACTIONS (5)
  - ASTHENIA [None]
  - HYPOKALAEMIA [None]
  - HYPONATRAEMIA [None]
  - LETHARGY [None]
  - TREMOR [None]
